FAERS Safety Report 18046380 (Version 2)
Quarter: 2020Q3

REPORT INFORMATION
  Report Type: Spontaneous
  Country: US (occurrence: US)
  Receive Date: 20200721
  Receipt Date: 20200727
  Transmission Date: 20201103
  Serious: Yes (Other)
  Sender: FDA-Public Use
  Company Number: US-AUROBINDO-AUR-APL-2020-035682

PATIENT
  Sex: Female

DRUGS (1)
  1. VENLAFAXINE HYDROCHLORIDE TABLETS 75 MG [Suspect]
     Active Substance: VENLAFAXINE HYDROCHLORIDE
     Indication: PRODUCT USED FOR UNKNOWN INDICATION
     Dosage: UNK
     Route: 065

REACTIONS (9)
  - Agitation [Unknown]
  - Feeling hot [Unknown]
  - Incorrect dose administered [Unknown]
  - Vomiting [Unknown]
  - Fear of death [Unknown]
  - Withdrawal syndrome [Unknown]
  - Hallucination [Unknown]
  - Starvation [Unknown]
  - Tremor [Unknown]
